FAERS Safety Report 6335640-6 (Version None)
Quarter: 2009Q3

REPORT INFORMATION
  Report Type: 
  Country: None (occurrence: None)
  Receive Date: 20090831
  Receipt Date: 20090821
  Transmission Date: 20100115
  Serious: Yes (Hospitalization)
  Sender: FDA-Public Use
  Company Number: US-ASTRAZENECA-2009SE09358

PATIENT
  Sex: Male

DRUGS (2)
  1. NEXIUM [Suspect]
  2. OMEPRAZOLE [Concomitant]

REACTIONS (3)
  - CARDIAC DISORDER [None]
  - NAUSEA [None]
  - VOMITING [None]
